FAERS Safety Report 9259249 (Version 1)
Quarter: 2013Q2

REPORT INFORMATION
  Report Type: Spontaneous
  Country: US (occurrence: US)
  Receive Date: 20130426
  Receipt Date: 20130426
  Transmission Date: 20140414
  Serious: No
  Sender: FDA-Public Use
  Company Number: US-ASTRAZENECA-2013SE23708

PATIENT
  Age: 76 Year
  Sex: Female
  Weight: 53.1 kg

DRUGS (7)
  1. CRESTOR [Suspect]
     Indication: BLOOD CHOLESTEROL
     Route: 048
     Dates: start: 2011
  2. CRESTOR [Suspect]
     Indication: BLOOD CHOLESTEROL
     Route: 048
     Dates: start: 2011
  3. TOPROL XL [Suspect]
     Indication: HYPERTENSION
     Route: 048
  4. DIOVAN [Concomitant]
     Indication: BLOOD PRESSURE ABNORMAL
  5. AMLODIPINE [Concomitant]
     Indication: BLOOD PRESSURE ABNORMAL
  6. PLAVIX [Concomitant]
     Indication: MYOCARDIAL INFARCTION
  7. METFORMIN [Concomitant]
     Indication: DIABETES MELLITUS

REACTIONS (3)
  - Local swelling [Recovered/Resolved]
  - Body height decreased [Unknown]
  - Diabetes mellitus [Unknown]
